FAERS Safety Report 14990802 (Version 4)
Quarter: 2018Q3

REPORT INFORMATION
  Report Type: Other
  Country: DE (occurrence: DE)
  Receive Date: 20180608
  Receipt Date: 20180712
  Transmission Date: 20181010
  Serious: Yes (Life-Threatening, Hospitalization)
  Sender: FDA-Public Use
  Company Number: DE-BIODELIVERY SCIENCES INTERNATIONAL-2018BDSI0241

PATIENT
  Age: 75 Year
  Sex: Male

DRUGS (4)
  1. PROPOFOL. [Suspect]
     Active Substance: PROPOFOL
     Indication: GENERAL ANAESTHESIA
     Route: 042
  2. FENTANYL CITRATE. [Suspect]
     Active Substance: FENTANYL CITRATE
     Indication: INDUCTION OF ANAESTHESIA
     Route: 065
  3. ROCURONIUM [Suspect]
     Active Substance: ROCURONIUM BROMIDE
     Indication: INDUCTION OF ANAESTHESIA
  4. PROPOFOL. [Suspect]
     Active Substance: PROPOFOL
     Indication: INDUCTION OF ANAESTHESIA
     Route: 042

REACTIONS (2)
  - Unmasking of previously unidentified disease [Recovered/Resolved]
  - Haemodynamic instability [Recovered/Resolved]
